FAERS Safety Report 7892360-4 (Version None)
Quarter: 2011Q4

REPORT INFORMATION
  Report Type: 
  Country: None (occurrence: None)
  Receive Date: 20111103
  Receipt Date: 20111103
  Transmission Date: 20120403
  Serious: Yes (Death)
  Sender: FDA-Public Use
  Company Number: None

PATIENT
  Sex: Female
  Weight: 47.2 kg

DRUGS (10)
  1. FRAGMAN [Concomitant]
  2. AMLODIPINE [Concomitant]
  3. POTASSIUM CHLORIDE [Concomitant]
  4. IMODIUM [Concomitant]
  5. MAGNESIUM OXIDE [Concomitant]
  6. SYNTHROID [Concomitant]
  7. RAD001 EVEROLIMUS [Suspect]
     Indication: COLORECTAL CANCER
     Dosage: 10 MG PO QD
     Route: 048
     Dates: start: 20110323, end: 20111012
  8. COMPAZINE [Concomitant]
  9. VITAMIN B-12 [Concomitant]
  10. AV-951 [Suspect]
     Indication: COLORECTAL CANCER
     Dosage: 1 MG PO QD
     Route: 048
     Dates: start: 20110323, end: 20111012

REACTIONS (1)
  - DEATH [None]
